FAERS Safety Report 17108391 (Version 1)
Quarter: 2019Q4

REPORT INFORMATION
  Report Type: Spontaneous
  Country: US (occurrence: US)
  Receive Date: 20191204
  Receipt Date: 20191204
  Transmission Date: 20200122
  Serious: No
  Sender: FDA-Public Use
  Company Number: US-UCBSA-2017041046

PATIENT
  Sex: Male

DRUGS (1)
  1. KEPPRA [Suspect]
     Active Substance: LEVETIRACETAM
     Indication: SEIZURE
     Dosage: 1500MG Q AM AND 2250 P.M., 2X/DAY (BID)
     Dates: start: 2002

REACTIONS (2)
  - Intentional product misuse [Unknown]
  - Expired product administered [Unknown]

NARRATIVE: CASE EVENT DATE: 2002
